FAERS Safety Report 10779958 (Version 1)
Quarter: 2015Q1

REPORT INFORMATION
  Report Type: Spontaneous
  Country: FR (occurrence: FR)
  Receive Date: 20150210
  Receipt Date: 20150210
  Transmission Date: 20150721
  Serious: Yes (Hospitalization)
  Sender: FDA-Public Use
  Company Number: FR-PFIZER INC-2015047645

PATIENT
  Age: 72 Year
  Sex: Female

DRUGS (11)
  1. EUPRESSYL [Concomitant]
     Active Substance: URAPIDIL
     Dosage: UNK
  2. CYCLOPHOSPHAMIDE. [Suspect]
     Active Substance: CYCLOPHOSPHAMIDE
     Indication: CHRONIC LYMPHOCYTIC LEUKAEMIA
     Dosage: 415 MG, DAILY
     Route: 041
     Dates: start: 20140220, end: 20140220
  3. BACTRIM [Suspect]
     Active Substance: SULFAMETHOXAZOLE\TRIMETHOPRIM
     Dosage: 3 DOSAGE FORMS (DF) ONCE WEEKLY
     Route: 048
     Dates: start: 20140220, end: 20140320
  4. SOLU-MEDROL [Suspect]
     Active Substance: METHYLPREDNISOLONE SODIUM SUCCINATE
     Dosage: 100 MG, DAILY
     Route: 041
     Dates: start: 20140220, end: 20140220
  5. SOLU-MEDROL [Suspect]
     Active Substance: METHYLPREDNISOLONE SODIUM SUCCINATE
     Dosage: 100 MG, DAILY
     Route: 041
     Dates: start: 20140320, end: 20140320
  6. FLUDARABINE PHOSPHATE. [Suspect]
     Active Substance: FLUDARABINE PHOSPHATE
     Dosage: 66.4 (NO UNITS PROVIDED) AS DAILY DOSAGE
     Route: 041
     Dates: start: 20140320, end: 20140320
  7. FLUDARABINE PHOSPHATE. [Suspect]
     Active Substance: FLUDARABINE PHOSPHATE
     Indication: CHRONIC LYMPHOCYTIC LEUKAEMIA
     Dosage: 66.4 (NO UNITS PROVIDED) AS DAILY DOSAGE
     Route: 041
     Dates: start: 20140220, end: 20140220
  8. MABTHERA [Suspect]
     Active Substance: RITUXIMAB
     Dosage: 622.5 (NO UNITS PROVIDED) ONCE MONTHLY
     Route: 041
     Dates: start: 20140320, end: 20140320
  9. CYCLOPHOSPHAMIDE. [Suspect]
     Active Substance: CYCLOPHOSPHAMIDE
     Dosage: 415 MG, DAILY
     Route: 041
     Dates: start: 20140320, end: 20140320
  10. MABTHERA [Suspect]
     Active Substance: RITUXIMAB
     Indication: CHRONIC LYMPHOCYTIC LEUKAEMIA
     Dosage: 622.5 (NO UNITS PROVIDED) ONCE MONTHLY
     Route: 041
     Dates: start: 20140220, end: 20140220
  11. ZELITREX [Suspect]
     Active Substance: VALACYCLOVIR HYDROCHLORIDE
     Dosage: 2 DF, 1X/DAY
     Route: 048
     Dates: start: 20140220, end: 20140320

REACTIONS (1)
  - Hepatitis cholestatic [Recovered/Resolved]

NARRATIVE: CASE EVENT DATE: 20140409
